FAERS Safety Report 23953844 (Version 4)
Quarter: 2024Q3

REPORT INFORMATION
  Report Type: Spontaneous
  Country: US (occurrence: US)
  Receive Date: 20240609
  Receipt Date: 20240824
  Transmission Date: 20241016
  Serious: No
  Sender: VIIV
  Company Number: US-ViiV Healthcare Limited-112179

PATIENT
  Age: 26 Year
  Sex: Female
  Weight: 107 kg

DRUGS (3)
  1. CABENUVA [Suspect]
     Active Substance: CABOTEGRAVIR\RILPIVIRINE
     Indication: HIV infection
     Dosage: UNK (CABOTEGRAVIR 600MG/ RILPIVIRINE900MG)
     Route: 030
     Dates: start: 20240423
  2. CABENUVA [Suspect]
     Active Substance: CABOTEGRAVIR\RILPIVIRINE
  3. CABENUVA [Suspect]
     Active Substance: CABOTEGRAVIR\RILPIVIRINE

REACTIONS (3)
  - Injection site mass [Recovering/Resolving]
  - Injection site nodule [Recovering/Resolving]
  - Injection site pain [Recovering/Resolving]

NARRATIVE: CASE EVENT DATE: 20240528
